APPROVED DRUG PRODUCT: AMITRIL
Active Ingredient: AMITRIPTYLINE HYDROCHLORIDE
Strength: 100MG
Dosage Form/Route: TABLET;ORAL
Application: A085093 | Product #001
Applicant: WARNER CHILCOTT DIV WARNER LAMBERT CO
Approved: Approved Prior to Jan 1, 1982 | RLD: No | RS: No | Type: DISCN